FAERS Safety Report 14175993 (Version 2)
Quarter: 2022Q4

REPORT INFORMATION
  Report Type: Report from Study
  Country: US (occurrence: US)
  Receive Date: 20171109
  Receipt Date: 20221121
  Transmission Date: 20230113
  Serious: Yes (Hospitalization, Other)
  Sender: FDA-Public Use
  Company Number: US-BRISTOL-MYERS SQUIBB COMPANY-BMS-2017-071340

PATIENT
  Sex: Male

DRUGS (4)
  1. NIVOLUMAB [Suspect]
     Active Substance: NIVOLUMAB
     Indication: Myelodysplastic syndrome
     Dosage: UNK
     Route: 065
  2. IPILIMUMAB [Suspect]
     Active Substance: IPILIMUMAB
     Indication: Myelodysplastic syndrome
     Dosage: UNK
     Route: 065
  3. AZACITIDINE [Suspect]
     Active Substance: AZACITIDINE
     Indication: Myelodysplastic syndrome
     Dosage: UNK
     Route: 065
  4. AZACITIDINE [Suspect]
     Active Substance: AZACITIDINE
     Dosage: UNK
     Route: 065
     Dates: end: 20170807

REACTIONS (5)
  - Arthralgia [Recovered/Resolved]
  - Osteoarthritis [Unknown]
  - Pneumonia [Unknown]
  - Atelectasis [Unknown]
  - Chondrocalcinosis [Unknown]

NARRATIVE: CASE EVENT DATE: 20170722
